FAERS Safety Report 11346573 (Version 1)
Quarter: 2015Q3

REPORT INFORMATION
  Report Type: Spontaneous
  Country: US (occurrence: US)
  Receive Date: 20150803
  Receipt Date: 20150803
  Transmission Date: 20151125
  Serious: Yes (Other)
  Sender: FDA-Public Use
  Company Number: US-ELI_LILLY_AND_COMPANY-US201010006544

PATIENT
  Age: 50 Year
  Sex: Male

DRUGS (2)
  1. ZYPREXA [Suspect]
     Active Substance: OLANZAPINE
     Indication: BIPOLAR DISORDER
     Dosage: UNK, DAILY (1/D)
     Route: 065
  2. ZYPREXA [Suspect]
     Active Substance: OLANZAPINE
     Dosage: 5 MG, DAILY (1/D)
     Dates: start: 201010

REACTIONS (7)
  - Weight increased [Recovered/Resolved]
  - Suicidal ideation [Recovered/Resolved]
  - Weight increased [Unknown]
  - Purging [Unknown]
  - Hunger [Unknown]
  - Hypersomnia [Unknown]
  - Bulimia nervosa [Unknown]

NARRATIVE: CASE EVENT DATE: 201010
